FAERS Safety Report 25472467 (Version 1)
Quarter: 2025Q2

REPORT INFORMATION
  Report Type: Spontaneous
  Country: GB (occurrence: GB)
  Receive Date: 20250624
  Receipt Date: 20250624
  Transmission Date: 20250717
  Serious: Yes (Other)
  Sender: ADVANZ PHARMA
  Company Number: None

PATIENT

DRUGS (2)
  1. PREDNISOLONE [Suspect]
     Active Substance: PREDNISOLONE
     Indication: Prostate cancer
  2. ABIRATERONE [Suspect]
     Active Substance: ABIRATERONE
     Indication: Prostate cancer

REACTIONS (2)
  - Brain fog [Unknown]
  - Fatigue [Unknown]

NARRATIVE: CASE EVENT DATE: 20250611
